FAERS Safety Report 5299122-5 (Version None)
Quarter: 2007Q2

REPORT INFORMATION
  Report Type: 
  Country: None (occurrence: None)
  Receive Date: 20070411
  Receipt Date: 20070411
  Transmission Date: 20071010
  Serious: Yes (Other)
  Sender: FDA-Public Use
  Company Number: None

PATIENT
  Age: 60 Year
  Sex: Male
  Weight: 78.3 kg

DRUGS (1)
  1. AUGMENTIN '125' [Suspect]
     Indication: POSTOPERATIVE CARE
     Dosage: 1.75/.25, 875 BID, ORAL
     Route: 048
     Dates: start: 20070116, end: 20070123

REACTIONS (1)
  - RASH [None]
